FAERS Safety Report 24894620 (Version 1)
Quarter: 2025Q1

REPORT INFORMATION
  Report Type: Spontaneous
  Country: US (occurrence: None)
  Receive Date: 20250127
  Receipt Date: 20250127
  Transmission Date: 20250408
  Serious: Yes (Hospitalization)
  Sender: FDA-CTU
  Company Number: None

PATIENT
  Age: 81 Year
  Sex: Male
  Weight: 83.25 kg

DRUGS (4)
  1. MIRALAX [Suspect]
     Active Substance: POLYETHYLENE GLYCOL 3350
     Indication: Bowel preparation
     Dosage: OTHER QUANTITY : 238 8.3 OZ.?FREQUENCY : AT BEDTIME?
     Route: 048
     Dates: start: 20250123, end: 20250123
  2. FOOD PRODUCT, OTHER [Suspect]
     Active Substance: FOOD PRODUCT, OTHER
  3. VITAMINS [Concomitant]
     Active Substance: VITAMINS
  4. Qnol CO-Q 10 [Concomitant]

REACTIONS (4)
  - Rash [None]
  - Pruritus [None]
  - Urticaria [None]
  - Dyspnoea [None]

NARRATIVE: CASE EVENT DATE: 20250123
